FAERS Safety Report 5570217-1 (Version None)
Quarter: 2007Q4

REPORT INFORMATION
  Report Type: 
  Country: None (occurrence: None)
  Receive Date: 20071217
  Receipt Date: 20071206
  Transmission Date: 20080405
  Serious: Yes (Hospitalization, Other)
  Sender: FDA-Public Use
  Company Number: 2007-02252

PATIENT
  Age: 44 Year
  Sex: Female
  Weight: 70 kg

DRUGS (5)
  1. VELCADE [Suspect]
     Indication: MULTIPLE MYELOMA
     Dosage: 2.00 MG, INTRAVENOUS; 1.70 MG, INTRAVENOUS
     Route: 042
     Dates: start: 20070604, end: 20070614
  2. VELCADE [Suspect]
     Indication: MULTIPLE MYELOMA
     Dosage: 2.00 MG, INTRAVENOUS; 1.70 MG, INTRAVENOUS
     Route: 042
     Dates: start: 20070716, end: 20070726
  3. DEXAMETHASONE TAB [Concomitant]
  4. ALFAROL (ALFACALCIDOL) [Concomitant]
  5. FAMOTIDINE [Concomitant]

REACTIONS (8)
  - DRUG HYPERSENSITIVITY [None]
  - HERPES ZOSTER [None]
  - HYPOAESTHESIA [None]
  - NAUSEA [None]
  - PAIN [None]
  - PAROTITIS [None]
  - PLATELET COUNT DECREASED [None]
  - WHITE BLOOD CELL COUNT DECREASED [None]
